FAERS Safety Report 10179422 (Version 2)
Quarter: 2014Q2

REPORT INFORMATION
  Report Type: Spontaneous
  Country: GB (occurrence: GB)
  Receive Date: 20140519
  Receipt Date: 20140613
  Transmission Date: 20141212
  Serious: Yes (Hospitalization, Other)
  Sender: FDA-Public Use
  Company Number: GB-ASTRAZENECA-2014SE31323

PATIENT
  Age: 35 Year
  Sex: Female
  Weight: 80 kg

DRUGS (7)
  1. PROPOFOL [Suspect]
     Indication: GENERAL ANAESTHESIA
     Route: 042
     Dates: start: 19970819, end: 19970819
  2. SUBLIMAZE [Suspect]
     Indication: ANALGESIC THERAPY
     Dosage: 0.1 MG/ML ONCE
     Route: 042
     Dates: start: 19970819, end: 19970819
  3. ALFENTANIL [Suspect]
     Indication: GENERAL ANAESTHESIA
     Dosage: ONCE/SINGLE ADMINISTRATION
     Route: 065
     Dates: start: 19970819, end: 19970819
  4. HYPNOVEL [Suspect]
     Indication: SEDATION
     Dosage: 37 MG IN TOTAL (30 MG WAS GIVEN IN 8 BOLUS DOSES OVER ABOUT 6 HOURS) ONCE
     Route: 042
     Dates: start: 19970819, end: 19970819
  5. HYPNOVEL [Suspect]
     Indication: ANALGESIC THERAPY
     Dosage: 37 MG IN TOTAL (30 MG WAS GIVEN IN 8 BOLUS DOSES OVER ABOUT 6 HOURS) ONCE
     Route: 042
     Dates: start: 19970819, end: 19970819
  6. ACYCLOVIR [Concomitant]
     Indication: PROPHYLAXIS
     Route: 048
  7. ITRACONAZOLE [Concomitant]
     Indication: PROPHYLAXIS
     Route: 048

REACTIONS (1)
  - Hepatitis acute [Recovered/Resolved]
